FAERS Safety Report 6555922-2 (Version None)
Quarter: 2010Q1

REPORT INFORMATION
  Report Type: 
  Country: None (occurrence: None)
  Receive Date: 20100128
  Receipt Date: 20100119
  Transmission Date: 20100710
  Serious: Yes (Other)
  Sender: FDA-Public Use
  Company Number: US-JNJFOC-20061001189

PATIENT
  Sex: Female
  Weight: 61.24 kg

DRUGS (1)
  1. RISPERDAL [Suspect]
     Indication: BIPOLAR DISORDER
     Route: 048

REACTIONS (7)
  - BRUXISM [None]
  - CONVULSION [None]
  - DIABETES MELLITUS [None]
  - LIP DISORDER [None]
  - SLEEP APNOEA SYNDROME [None]
  - TRISMUS [None]
  - WEIGHT INCREASED [None]
